FAERS Safety Report 11807233 (Version 1)
Quarter: 2015Q4

REPORT INFORMATION
  Report Type: Spontaneous
  Country: US (occurrence: US)
  Receive Date: 20151207
  Receipt Date: 20151207
  Transmission Date: 20160305
  Serious: No
  Sender: FDA-Public Use
  Company Number: US-FRI-1000072133

PATIENT
  Age: 69 Year
  Sex: Male

DRUGS (8)
  1. TEFLARO [Suspect]
     Active Substance: CEFTAROLINE FOSAMIL
     Indication: STAPHYLOCOCCAL INFECTION
     Dosage: 800 MG
     Route: 042
     Dates: start: 20140722, end: 20140729
  2. TEFLARO [Suspect]
     Active Substance: CEFTAROLINE FOSAMIL
     Dosage: 800 MG
     Route: 042
     Dates: start: 20140812, end: 20140819
  3. METOPROLOL [Concomitant]
     Active Substance: METOPROLOL
     Indication: HYPERTENSION
     Dosage: 100 MG
  4. TEFLARO [Suspect]
     Active Substance: CEFTAROLINE FOSAMIL
     Indication: STAPHYLOCOCCAL INFECTION
     Dosage: 1200 MG
     Route: 042
     Dates: start: 20140730, end: 20140808
  5. FENOFIBRATE. [Concomitant]
     Active Substance: FENOFIBRATE
  6. BUTRANS [Concomitant]
     Active Substance: BUPRENORPHINE
  7. CLINDAMYCIN [Concomitant]
     Active Substance: CLINDAMYCIN\CLINDAMYCIN PHOSPHATE
     Dosage: 150 MG
  8. TRAMADOL. [Concomitant]
     Active Substance: TRAMADOL

REACTIONS (2)
  - Rash [Not Recovered/Not Resolved]
  - Pruritus [Not Recovered/Not Resolved]

NARRATIVE: CASE EVENT DATE: 20140803
